FAERS Safety Report 12355599 (Version 1)
Quarter: 2016Q2

REPORT INFORMATION
  Report Type: Spontaneous
  Country: DE (occurrence: DE)
  Receive Date: 20160511
  Receipt Date: 20160511
  Transmission Date: 20160815
  Serious: Yes (Hospitalization)
  Sender: FDA-Public Use
  Company Number: DE-UNICHEM LABORATORIES LIMITED-UCM201605-000070

PATIENT
  Age: 6 Year
  Sex: Male

DRUGS (2)
  1. DIVALPROEX SODIUM. [Suspect]
     Active Substance: DIVALPROEX SODIUM
     Indication: EPILEPSY
  2. LAMOTRIGINE. [Suspect]
     Active Substance: LAMOTRIGINE
     Indication: EPILEPSY

REACTIONS (5)
  - Movement disorder [Recovered/Resolved]
  - Hyperthermia [Recovered/Resolved]
  - Blood creatine phosphokinase increased [Recovered/Resolved]
  - Encephalopathy [Recovered/Resolved]
  - Condition aggravated [Recovered/Resolved]
